FAERS Safety Report 5164737-1 (Version None)
Quarter: 2006Q4

REPORT INFORMATION
  Report Type: 
  Country: None (occurrence: None)
  Receive Date: 20061205
  Receipt Date: 20020201
  Transmission Date: 20070319
  Serious: Yes (Hospitalization)
  Sender: FDA-Public Use
  Company Number: FR-GLAXOSMITHKLINE-B0135482B

PATIENT
  Sex: Male

DRUGS (12)
  1. RETROVIR [Suspect]
     Indication: HIV INFECTION
     Dosage: 100MG FIVE TIMES PER DAY
     Route: 048
     Dates: start: 19960530
  2. RETROVIR [Suspect]
     Route: 042
     Dates: start: 19970108
  3. RETROVIR [Suspect]
     Indication: ANTIVIRAL PROPHYLAXIS
     Route: 048
     Dates: start: 19970108, end: 19970220
  4. RETROVIR [Suspect]
     Route: 048
     Dates: start: 19970108, end: 19970108
  5. EPIVIR [Suspect]
     Indication: HIV INFECTION
     Dosage: 150MG TWICE PER DAY
     Route: 048
  6. EPIVIR [Suspect]
     Indication: ANTIVIRAL PROPHYLAXIS
     Route: 048
     Dates: start: 19970108, end: 19970220
  7. ZALCITABINE [Suspect]
     Indication: HIV INFECTION
     Dosage: 450MG THREE TIMES PER DAY
     Route: 048
     Dates: end: 19960530
  8. COTRIM D.S. [Concomitant]
     Route: 065
  9. IRON SALTS [Concomitant]
     Route: 065
  10. SODIUM FLUORIDE [Concomitant]
     Route: 065
  11. PHLOROGLUCINOL (SPASFON) [Concomitant]
     Route: 065
  12. VITAMIN CAP [Concomitant]
     Route: 065

REACTIONS (7)
  - COMMUNICATION DISORDER [None]
  - DRUG EXPOSURE DURING PREGNANCY [None]
  - FOETAL DISTRESS SYNDROME [None]
  - NEONATAL DISORDER [None]
  - SPEECH DISORDER DEVELOPMENTAL [None]
  - THROMBOCYTHAEMIA [None]
  - THROMBOCYTOPENIA NEONATAL [None]
